FAERS Safety Report 5097382-7 (Version None)
Quarter: 2006Q3

REPORT INFORMATION
  Report Type: 
  Country: None (occurrence: None)
  Receive Date: 20060906
  Receipt Date: 20060901
  Transmission Date: 20061208
  Serious: Yes (Life-Threatening, Hospitalization)
  Sender: FDA-Public Use
  Company Number: 2006SE04711

PATIENT
  Age: 47 Year
  Sex: Male

DRUGS (12)
  1. ATENOLOL [Suspect]
     Route: 048
  2. OMEPRAZOLE [Interacting]
     Route: 048
  3. ZYVOX SOLUTION, STERILE [Interacting]
     Indication: STAPHYLOCOCCAL INFECTION
     Route: 042
     Dates: start: 20041017, end: 20041020
  4. PANTOPRAZOLE SODIUM [Interacting]
  5. RIFAMPICIN [Interacting]
     Route: 042
  6. DOXAZOSIN MESYLATE [Interacting]
     Route: 048
  7. PROCYCLIDINE HYDROCHLORIDE 2MG TAB [Interacting]
     Route: 048
  8. FENTANYL [Interacting]
     Route: 061
  9. FENTANYL [Interacting]
     Route: 042
  10. AMISULPRIDE [Interacting]
     Route: 048
  11. ZOPICLONE [Interacting]
  12. HALOPERIDOL [Interacting]

REACTIONS (2)
  - DRUG INTERACTION [None]
  - HYPERTENSION [None]
